FAERS Safety Report 8783455 (Version 2)
Quarter: 2013Q2

REPORT INFORMATION
  Report Type: Report from Study
  Country: US (occurrence: US)
  Receive Date: 20120913
  Receipt Date: 20130529
  Transmission Date: 20140414
  Serious: No
  Sender: FDA-Public Use
  Company Number: US-VERTEX PHARMACEUTICAL INC.-AE-2012-009109

PATIENT
  Age: 63 Year
  Sex: Female

DRUGS (3)
  1. VX-950 (TELAPREVIR) [Suspect]
     Indication: HEPATITIS C
     Dosage: UNK
     Route: 048
     Dates: start: 20120107, end: 20120330
  2. PEGASYS [Suspect]
     Indication: HEPATITIS C
     Dosage: UNK
     Dates: start: 20120107, end: 20120621
  3. RIBAPAK [Suspect]
     Indication: HEPATITIS C
     Dosage: UNK
     Dates: start: 20120107, end: 20120621

REACTIONS (3)
  - Amnesia [Not Recovered/Not Resolved]
  - Learning disorder [Not Recovered/Not Resolved]
  - Drug ineffective [Recovered/Resolved]
